FAERS Safety Report 21127424 (Version 1)
Quarter: 2022Q3

REPORT INFORMATION
  Report Type: Spontaneous
  Country: US (occurrence: US)
  Receive Date: 20220725
  Receipt Date: 20220725
  Transmission Date: 20221027
  Serious: No
  Sender: FDA-Public Use
  Company Number: US-ABBVIE-21K-163-4108400-00

PATIENT
  Sex: Male

DRUGS (5)
  1. SYNTHROID [Suspect]
     Active Substance: LEVOTHYROXINE SODIUM
     Indication: Product used for unknown indication
     Route: 048
     Dates: end: 2021
  2. SYNTHROID [Suspect]
     Active Substance: LEVOTHYROXINE SODIUM
     Route: 048
     Dates: start: 2021
  3. CORTEF [Concomitant]
     Active Substance: HYDROCORTISONE
     Indication: Product used for unknown indication
  4. CORTICOSTEROID NOS [Concomitant]
     Active Substance: CORTICOSTEROID NOS
     Indication: Product used for unknown indication
  5. CONCERTA [Concomitant]
     Active Substance: METHYLPHENIDATE HYDROCHLORIDE
     Indication: Product used for unknown indication

REACTIONS (15)
  - Thyroid disorder [Unknown]
  - Malaise [Unknown]
  - Temperature intolerance [Unknown]
  - Mental disorder [Unknown]
  - Polyglandular autoimmune syndrome type II [Unknown]
  - Type 1 diabetes mellitus [Unknown]
  - Addison^s disease [Unknown]
  - Hyperhidrosis [Unknown]
  - Insomnia [Unknown]
  - Weight fluctuation [Unknown]
  - Anger [Unknown]
  - Dyspnoea exertional [Unknown]
  - Tremor [Unknown]
  - Feeling cold [Unknown]
  - Autoimmune thyroiditis [Unknown]

NARRATIVE: CASE EVENT DATE: 20070101
